FAERS Safety Report 10278201 (Version 1)
Quarter: 2014Q3

REPORT INFORMATION
  Report Type: Spontaneous
  Country: US (occurrence: US)
  Receive Date: 20140704
  Receipt Date: 20140704
  Transmission Date: 20150326
  Serious: No
  Sender: FDA-Public Use
  Company Number: US-AMGEN INC.-USASP2014049177

PATIENT
  Age: 64 Year
  Sex: Male
  Weight: 68.03 kg

DRUGS (5)
  1. VITAMIN A                          /00056001/ [Concomitant]
     Active Substance: VITAMIN A
     Dosage: UNK
  2. ESTER C                            /00008001/ [Concomitant]
     Dosage: 500 MG, UNK
  3. ENBREL [Suspect]
     Active Substance: ETANERCEPT
     Indication: PRODUCT USED FOR UNKNOWN INDICATION
     Dosage: 50 MG, QWK
     Route: 058
  4. IBUPROFEN. [Concomitant]
     Active Substance: IBUPROFEN
     Dosage: 200 MG, UNK
  5. B COMPLEX                          /06817001/ [Concomitant]
     Dosage: UNK

REACTIONS (2)
  - Pain in extremity [Unknown]
  - Paraesthesia [Unknown]

NARRATIVE: CASE EVENT DATE: 20140619
